FAERS Safety Report 8215466-9 (Version None)
Quarter: 2012Q1

REPORT INFORMATION
  Report Type: 
  Country: None (occurrence: None)
  Receive Date: 20120314
  Receipt Date: 20120227
  Transmission Date: 20120608
  Serious: Yes (Hospitalization)
  Sender: FDA-Public Use
  Company Number: QSC-2012-0011

PATIENT
  Age: 58 Year
  Sex: Female
  Weight: 80.7 kg

DRUGS (2)
  1. H.P. ACTHAR GEL [Suspect]
     Indication: CONDITION AGGRAVATED
     Dosage: UNK
     Dates: start: 20110609, end: 20110613
  2. H.P. ACTHAR GEL [Suspect]
     Indication: MULTIPLE SCLEROSIS
     Dosage: UNK
     Dates: start: 20110609, end: 20110613

REACTIONS (6)
  - DYSARTHRIA [None]
  - PARALYSIS [None]
  - GAIT DISTURBANCE [None]
  - FALL [None]
  - MULTIPLE SCLEROSIS [None]
  - CONDITION AGGRAVATED [None]
